FAERS Safety Report 15674373 (Version 1)
Quarter: 2018Q4

REPORT INFORMATION
  Report Type: Spontaneous
  Country: US (occurrence: US)
  Receive Date: 20181130
  Receipt Date: 20181130
  Transmission Date: 20190205
  Serious: No
  Sender: FDA-Public Use
  Company Number: US-LUPIN PHARMACEUTICALS INC.-2018-03610

PATIENT
  Sex: Male

DRUGS (1)
  1. LOSARTAN POTASSIUM TABLET USP 100 MG [Suspect]
     Active Substance: LOSARTAN POTASSIUM
     Indication: HYPERTENSION
     Dosage: 100 MG, QD
     Route: 048
     Dates: start: 201803

REACTIONS (2)
  - Product odour abnormal [Unknown]
  - Dizziness [Unknown]
